FAERS Safety Report 12265815 (Version 1)
Quarter: 2016Q2

REPORT INFORMATION
  Report Type: Spontaneous
  Country: FR (occurrence: FR)
  Receive Date: 20160413
  Receipt Date: 20160413
  Transmission Date: 20160815
  Serious: Yes (Life-Threatening, Hospitalization)
  Sender: FDA-Public Use
  Company Number: FR-ASTRAZENECA-2016SE38494

PATIENT
  Age: 16509 Day
  Sex: Female

DRUGS (4)
  1. XANAX [Suspect]
     Active Substance: ALPRAZOLAM
     Route: 048
     Dates: start: 20160304
  2. XEROQUEL [Suspect]
     Active Substance: QUETIAPINE FUMARATE
     Route: 048
     Dates: start: 20160304
  3. NOCTAMIDE [Suspect]
     Active Substance: LORMETAZEPAM
     Route: 048
     Dates: start: 20160304
  4. LEVOTHYROX [Concomitant]
     Active Substance: LEVOTHYROXINE

REACTIONS (4)
  - Hypotension [Recovered/Resolved]
  - Electrocardiogram QT prolonged [Unknown]
  - Toxicity to various agents [Unknown]
  - Coma [Recovered/Resolved]

NARRATIVE: CASE EVENT DATE: 20160305
